FAERS Safety Report 9781259 (Version 1)
Quarter: 2013Q4

REPORT INFORMATION
  Report Type: Spontaneous
  Country: US (occurrence: None)
  Receive Date: 20131223
  Receipt Date: 20131223
  Transmission Date: 20140711
  Serious: Yes (Other)
  Sender: FDA-Public Use
  Company Number: None

PATIENT
  Age: 65 Year
  Sex: Female

DRUGS (2)
  1. PROLIA [Suspect]
     Dosage: 60MG, EVERY SIX MONTHS, SQ
     Dates: start: 20130902, end: 20130902
  2. PROLIA [Suspect]
     Dosage: 60MG, EVERY SIX MONTHS, SQ
     Dates: start: 20130902, end: 20130902

REACTIONS (3)
  - Arthralgia [None]
  - Arthralgia [None]
  - Back pain [None]
